FAERS Safety Report 7787318-X (Version None)
Quarter: 2011Q3

REPORT INFORMATION
  Report Type: 
  Country: None (occurrence: None)
  Receive Date: 20110929
  Receipt Date: 20110923
  Transmission Date: 20111222
  Serious: Yes (Death, Other)
  Sender: FDA-Public Use
  Company Number: US-ELI_LILLY_AND_COMPANY-US201109006942

PATIENT
  Sex: Male

DRUGS (1)
  1. ALIMTA [Suspect]
     Dosage: UNK, UNKNOWN
     Dates: start: 20100909

REACTIONS (2)
  - NEOPLASM PROGRESSION [None]
  - DEATH [None]
